FAERS Safety Report 11824947 (Version 1)
Quarter: 2015Q4

REPORT INFORMATION
  Report Type: Report from Study
  Country: TW (occurrence: TW)
  Receive Date: 20151210
  Receipt Date: 20151210
  Transmission Date: 20160305
  Serious: Yes (Other)
  Sender: FDA-Public Use
  Company Number: TW-009507513-1512TWN003164

PATIENT
  Age: 61 Year
  Sex: Female

DRUGS (3)
  1. BOCEPREVIR [Suspect]
     Active Substance: BOCEPREVIR
     Indication: HEPATITIS C
     Dosage: 800 MG, 3 TIMES DAILY
     Route: 048
  2. PEGINTERFERON ALFA-2B [Suspect]
     Active Substance: PEGINTERFERON ALFA-2B
     Indication: HEPATITIS C
     Dosage: 1.5 MICROGRAM PER KILOGRAM / WEEK
     Route: 058
  3. RIBAVIRIN. [Suspect]
     Active Substance: RIBAVIRIN
     Indication: HEPATITIS C
     Dosage: BASED ON BODY WEIGHT (1000 MG/D FOR WEIGHT{ 75 KG AND 1200 MG/D FOR WEIGHT }=75KG)
     Route: 048

REACTIONS (1)
  - Hypothyroidism [Unknown]
